FAERS Safety Report 9779685 (Version 1)
Quarter: 2013Q4

REPORT INFORMATION
  Report Type: Spontaneous
  Country: AU (occurrence: AU)
  Receive Date: 20131223
  Receipt Date: 20131223
  Transmission Date: 20140711
  Serious: Yes (Other)
  Sender: FDA-Public Use
  Company Number: AU-BANPHARM-20131966

PATIENT
  Age: 18 Day
  Sex: Male

DRUGS (5)
  1. IBUPROFEN UNKNOWN PRODUCT [Suspect]
     Dosage: 10 MG/KG; X2;
     Route: 042
  2. IBUPROFEN UNKNOWN PRODUCT [Suspect]
     Dosage: 5MG/KG; X4;
     Route: 042
  3. PENICILLIN [Concomitant]
  4. GENTAMICIN [Concomitant]
  5. CEFOTAXIME [Concomitant]

REACTIONS (1)
  - Pulmonary hypertension [Unknown]
